FAERS Safety Report 16624520 (Version 1)
Quarter: 2019Q3

REPORT INFORMATION
  Report Type: Report from Study
  Country: US (occurrence: US)
  Receive Date: 20190724
  Receipt Date: 20190724
  Transmission Date: 20191004
  Serious: No
  Sender: FDA-Public Use
  Company Number: US-KYOWAKIRIN-2019BKK011552

PATIENT

DRUGS (1)
  1. POTELIGEO [Suspect]
     Active Substance: MOGAMULIZUMAB-KPKC
     Indication: PRODUCT USED FOR UNKNOWN INDICATION
     Dosage: UNKNOWN
     Route: 065

REACTIONS (6)
  - Pruritus [Not Recovered/Not Resolved]
  - Chills [Recovered/Resolved]
  - Myalgia [Unknown]
  - Fatigue [Unknown]
  - Hyperhidrosis [Recovered/Resolved]
  - Sleep disorder [Not Recovered/Not Resolved]
